FAERS Safety Report 4758285-8 (Version None)
Quarter: 2005Q3

REPORT INFORMATION
  Report Type: 
  Country: None (occurrence: None)
  Receive Date: 20050826
  Receipt Date: 20050614
  Transmission Date: 20060218
  Serious: No
  Sender: FDA-Public Use
  Company Number: WAES 0506USA02093

PATIENT
  Age: 84 Year
  Sex: Female
  Weight: 89.8122 kg

DRUGS (13)
  1. ZETIA [Suspect]
     Indication: BLOOD CHOLESTEROL INCREASED
     Dosage: 10 MG/DAILY/PO;  UNK/DAILY/PO;  10 MG/DAILY/PO
     Route: 048
     Dates: start: 20050420, end: 20050611
  2. ZETIA [Suspect]
     Indication: LOW DENSITY LIPOPROTEIN INCREASED
     Dosage: 10 MG/DAILY/PO;  UNK/DAILY/PO;  10 MG/DAILY/PO
     Route: 048
     Dates: start: 20050420, end: 20050611
  3. ZETIA [Suspect]
     Indication: BLOOD CHOLESTEROL INCREASED
     Dosage: 10 MG/DAILY/PO;  UNK/DAILY/PO;  10 MG/DAILY/PO
     Route: 048
     Dates: start: 20050611
  4. ZETIA [Suspect]
     Indication: LOW DENSITY LIPOPROTEIN INCREASED
     Dosage: 10 MG/DAILY/PO;  UNK/DAILY/PO;  10 MG/DAILY/PO
     Route: 048
     Dates: start: 20050611
  5. ACCUPRIL [Concomitant]
     Indication: BLOOD CHOLESTEROL INCREASED
  6. ALDACTONE [Concomitant]
  7. COLACE [Concomitant]
  8. ESTRADERM [Concomitant]
  9. HYDRODIURIL [Concomitant]
  10. TUMS [Concomitant]
  11. ASPIRIN [Concomitant]
  12. INSULIN [Concomitant]
  13. VITAMINS (UNSPECIFIED) [Concomitant]

REACTIONS (5)
  - CONSTIPATION [None]
  - DIARRHOEA [None]
  - DRUG ADMINISTRATION ERROR [None]
  - HAIR GROWTH ABNORMAL [None]
  - WEIGHT DECREASED [None]
